FAERS Safety Report 10031625 (Version 1)
Quarter: 2014Q1

REPORT INFORMATION
  Report Type: Spontaneous
  Country: US (occurrence: US)
  Receive Date: 20140324
  Receipt Date: 20140324
  Transmission Date: 20141002
  Serious: No
  Sender: FDA-Public Use
  Company Number: US-PFIZER INC-2014081918

PATIENT
  Age: 63 Year
  Sex: Female
  Weight: 78.91 kg

DRUGS (14)
  1. XELJANZ [Suspect]
     Indication: RHEUMATOID ARTHRITIS
     Dosage: 5 MG, 2X/DAY
     Route: 048
     Dates: start: 201311, end: 20140218
  2. ATORVASTATIN [Concomitant]
     Dosage: UNK
  3. BUPROBAN [Concomitant]
     Dosage: UNK
  4. IMITREX [Concomitant]
     Dosage: UNK
  5. NEURONTIN [Concomitant]
     Dosage: UNK
  6. PREMARIN [Concomitant]
     Dosage: UNK
  7. PROZAC [Concomitant]
     Dosage: UNK
  8. VITAMIN D3 [Concomitant]
     Dosage: UNK
  9. EXCEDRIN [Concomitant]
     Dosage: UNK
  10. SUMATRIPTAN [Concomitant]
     Dosage: UNK
  11. SYNTHROID [Concomitant]
     Dosage: UNK
  12. FLUOXETINE [Concomitant]
     Dosage: UNK
  13. CLORAZEPATE [Concomitant]
     Dosage: UNK
  14. MULTIVITAMINS [Concomitant]
     Dosage: UNK

REACTIONS (2)
  - Rash [Recovering/Resolving]
  - Fungal infection [Recovering/Resolving]
